FAERS Safety Report 16901849 (Version 2)
Quarter: 2020Q1

REPORT INFORMATION
  Report Type: Report from Study
  Country: None (occurrence: AR)
  Receive Date: 20191010
  Receipt Date: 20200220
  Transmission Date: 20200409
  Serious: Yes (Hospitalization, Disabling)
  Sender: FDA-Public Use
  Company Number: AR-ABBVIE-19K-007-2956073-00

PATIENT
  Age: 68 Year
  Sex: Female

DRUGS (1)
  1. HUMIRA [Suspect]
     Active Substance: ADALIMUMAB
     Indication: PSORIATIC ARTHROPATHY
     Route: 058
     Dates: start: 20130820

REACTIONS (1)
  - Knee deformity [Not Recovered/Not Resolved]

NARRATIVE: CASE EVENT DATE: 201908
